FAERS Safety Report 17809905 (Version 4)
Quarter: 2020Q2

REPORT INFORMATION
  Report Type: Report from Study
  Country: US (occurrence: US)
  Receive Date: 20200521
  Receipt Date: 20200625
  Transmission Date: 20200714
  Serious: Yes (Death, Life-Threatening, Hospitalization)
  Sender: FDA-Public Use
  Company Number: US-SA-2020SA122428

PATIENT

DRUGS (9)
  1. PREDNISONE. [Concomitant]
     Active Substance: PREDNISONE
     Indication: FIBROMYALGIA
     Dosage: 20 MG, QD
     Dates: start: 20200507, end: 20200602
  2. SARILUMAB [Suspect]
     Active Substance: SARILUMAB
     Dosage: REGN88 OR PLACEBO 200 MG OR 400 MG, SINGLE OR MULTIPLE
     Route: 042
     Dates: start: 20200430, end: 20200430
  3. SOLU-CORTEF [Concomitant]
     Active Substance: HYDROCORTISONE SODIUM SUCCINATE
     Indication: COVID-19
     Dosage: 25 MG, QID
     Route: 042
     Dates: start: 20200421, end: 20200423
  4. SOLU-CORTEF [Concomitant]
     Active Substance: HYDROCORTISONE SODIUM SUCCINATE
     Dosage: 25 MG, BID
     Route: 042
     Dates: start: 20200423, end: 20200502
  5. SARILUMAB [Suspect]
     Active Substance: SARILUMAB
     Indication: COVID-19
     Dosage: REGN88 OR PLACEBO 200 MG OR 400 MG, SINGLE OR MULTIPLE
     Route: 042
     Dates: start: 20200423, end: 20200423
  6. PLAQUENIL [HYDROXYCHLOROQUINE PHOSPHATE] [Concomitant]
     Active Substance: HYDROXYCHLOROQUINE DIPHOSPHATE
     Indication: COVID-19
     Dosage: 200 MG, BID, FEEDING TUBE
     Route: 050
     Dates: start: 20200420, end: 20200424
  7. DIGOXIN. [Concomitant]
     Active Substance: DIGOXIN
     Indication: ATRIAL FIBRILLATION
     Dosage: 0.125 ?G, QD; DATE OF LAST ADMINISTRATION: 22-APR-2020
     Route: 048
  8. SOLU-CORTEF [Concomitant]
     Active Substance: HYDROCORTISONE SODIUM SUCCINATE
     Dosage: 20 MG, QD
     Route: 042
     Dates: start: 20200503, end: 20200504
  9. ZOSYN [Concomitant]
     Active Substance: PIPERACILLIN SODIUM\TAZOBACTAM SODIUM
     Indication: COVID-19
     Dosage: 4.5 G, TID
     Route: 042
     Dates: start: 20200420, end: 20200424

REACTIONS (3)
  - COVID-19 pneumonia [Fatal]
  - Bacterial infection [Not Recovered/Not Resolved]
  - Liver function test increased [Recovering/Resolving]

NARRATIVE: CASE EVENT DATE: 20200506
